FAERS Safety Report 6886064-4 (Version None)
Quarter: 2010Q3

REPORT INFORMATION
  Report Type: 
  Country: None (occurrence: None)
  Receive Date: 20100729
  Receipt Date: 20080822
  Transmission Date: 20110219
  Serious: No
  Sender: FDA-Public Use
  Company Number: US-PFIZER INC-2008058600

PATIENT
  Sex: Female

DRUGS (12)
  1. CELEBREX [Suspect]
  2. FOSAMAX [Concomitant]
     Indication: OSTEOPOROSIS
     Route: 048
  3. ANASTROZOLE [Concomitant]
  4. NEXIUM [Concomitant]
  5. CARDIOVASCULAR SYSTEM DRUGS [Concomitant]
  6. MAGNESIUM [Concomitant]
  7. CALCIUM [Concomitant]
  8. VITAMINS [Concomitant]
  9. PRILOSEC [Concomitant]
  10. ANTIMIGRAINE PREPARATIONS [Concomitant]
  11. ALL OTHER THERAPEUTIC PRODUCTS [Concomitant]
  12. ALL OTHER THERAPEUTIC PRODUCTS [Concomitant]

REACTIONS (1)
  - DRUG INEFFECTIVE [None]
